FAERS Safety Report 24087754 (Version 2)
Quarter: 2024Q3

REPORT INFORMATION
  Report Type: Report from Study
  Country: CN (occurrence: CN)
  Receive Date: 20240715
  Receipt Date: 20240720
  Transmission Date: 20241017
  Serious: Yes (Hospitalization)
  Sender: AMGEN
  Company Number: CN-AMGEN-CHNNI2024135641

PATIENT
  Age: 84 Year
  Sex: Female
  Weight: 72 kg

DRUGS (13)
  1. DENOSUMAB [Suspect]
     Active Substance: DENOSUMAB
     Indication: Osteoporosis postmenopausal
     Dosage: 60 MILLIGRAM
     Route: 058
     Dates: start: 20240105
  2. POLYETHYLENE GLYCOL 4000 [Concomitant]
     Active Substance: POLYETHYLENE GLYCOL 4000
     Dosage: 10 GRAM
     Route: 048
     Dates: start: 2016
  3. CLONAZEPAM [Concomitant]
     Active Substance: CLONAZEPAM
     Dosage: 2 MILLIGRAM
     Route: 048
     Dates: start: 20240101
  4. CALCITRIOL [Concomitant]
     Active Substance: CALCITRIOL
     Dosage: 0.5 MICROGRAM
     Route: 048
     Dates: start: 20240102, end: 202405
  5. CALCITONIN SALMON [Concomitant]
     Active Substance: CALCITONIN SALMON
     Dosage: 50 INTERNATIONAL UNIT
     Route: 058
     Dates: start: 20240102, end: 20240218
  6. Mai ling da [Concomitant]
     Dosage: 0.15 GRAM
     Route: 048
     Dates: start: 20240105
  7. FLURBIPROFEN [Concomitant]
     Active Substance: FLURBIPROFEN
     Dosage: 40 MILLIGRAM
     Route: 050
     Dates: start: 20240203
  8. CALCIUM CARBONATE\CHOLECALCIFEROL [Concomitant]
     Active Substance: CALCIUM CARBONATE\CHOLECALCIFEROL
     Dosage: 0.6 GRAM
     Route: 048
     Dates: start: 20240102, end: 202404
  9. CELECOXIB [Concomitant]
     Active Substance: CELECOXIB
     Dosage: 0.2 GRAM
     Route: 048
     Dates: start: 20240105, end: 20240215
  10. OMEPRAZOLE [Concomitant]
     Active Substance: OMEPRAZOLE
     Dosage: UNK
     Route: 048
     Dates: start: 20240105
  11. ORYZANOL [Concomitant]
     Active Substance: GAMMA ORYZANOL
     Dosage: 20 MILLIGRAM
     Route: 048
     Dates: start: 20240203
  12. VITAMIN D2 [Concomitant]
     Active Substance: ERGOCALCIFEROL
     Dosage: 15 MILLIGRAM
     Route: 058
     Dates: start: 20240203, end: 20240203
  13. ETOCOXIB [Concomitant]
     Indication: Osteoporosis
     Dosage: UNK
     Dates: start: 20240105

REACTIONS (5)
  - Uterovaginal prolapse [Not Recovered/Not Resolved]
  - Lung disorder [Not Recovered/Not Resolved]
  - Pulmonary mass [Not Recovered/Not Resolved]
  - Lung disorder [Recovered/Resolved]
  - Anaemia [Not Recovered/Not Resolved]

NARRATIVE: CASE EVENT DATE: 20240213
